FAERS Safety Report 20517839 (Version 1)
Quarter: 2022Q1

REPORT INFORMATION
  Report Type: Report from Study
  Country: FR (occurrence: FR)
  Receive Date: 20220225
  Receipt Date: 20220225
  Transmission Date: 20220423
  Serious: Yes (Hospitalization)
  Sender: FDA-Public Use
  Company Number: FR-SERVIER-S22001829

PATIENT

DRUGS (6)
  1. PEGASPARGASE [Suspect]
     Active Substance: PEGASPARGASE
     Indication: Acute lymphocytic leukaemia
     Dosage: 1050 IU, D8, D36
     Route: 042
     Dates: start: 20211028
  2. TN UNSPECIFIED [Concomitant]
     Indication: Acute lymphocytic leukaemia
     Dosage: 1.2 MG, ON D1, D8, D29, D36
     Route: 042
     Dates: start: 20211021
  3. TN UNSPECIFIED [Concomitant]
     Indication: Acute lymphocytic leukaemia
     Dosage: 4.9 MG, ON D1 TO D15, D29 TO D33
     Route: 048
     Dates: start: 20211021
  4. TN UNSPECIFIED [Concomitant]
     Indication: Acute lymphocytic leukaemia
     Dosage: 41 MG, ON D1 TO D21, D29 TO D49
     Route: 048
     Dates: start: 20211021
  5. TN UNSPECIFIED [Concomitant]
     Indication: Acute lymphocytic leukaemia
     Dosage: 12 MG, ON D2, D30
     Route: 037
     Dates: start: 20211022
  6. TN UNSPECIFIED [Concomitant]
     Dosage: 20.5 MG, ON D8, D15, D22, D36, D43, D50
     Route: 048
     Dates: start: 20211028

REACTIONS (3)
  - Hepatomegaly [Recovering/Resolving]
  - Pancreatitis acute [Recovering/Resolving]
  - Hyperbilirubinaemia [Recovering/Resolving]

NARRATIVE: CASE EVENT DATE: 20211210
